FAERS Safety Report 4447139-2 (Version None)
Quarter: 2004Q3

REPORT INFORMATION
  Report Type: 
  Country: None (occurrence: None)
  Receive Date: 20040813
  Receipt Date: 20040428
  Transmission Date: 20050211
  Serious: No
  Sender: FDA-Public Use
  Company Number: S04-USA-02961-01

PATIENT
  Age: 79 Year
  Sex: Male

DRUGS (6)
  1. NAMENDA [Suspect]
     Indication: DEMENTIA ALZHEIMER'S TYPE
     Dosage: 10 MG BID PO
     Route: 048
  2. ARICEPT [Concomitant]
  3. LEXAPRO [Concomitant]
  4. DIABETES MEDICATION (NOS) [Concomitant]
  5. HYPERTENSION MEDICATION (NOS) [Concomitant]
  6. CHOLESTEROL MEDICATION (NOS) [Concomitant]

REACTIONS (1)
  - ABNORMAL DREAMS [None]
